FAERS Safety Report 6652888-1 (Version None)
Quarter: 2010Q1

REPORT INFORMATION
  Report Type: 
  Country: None (occurrence: None)
  Receive Date: 20100326
  Receipt Date: 20100316
  Transmission Date: 20100710
  Serious: Yes (Other)
  Sender: FDA-Public Use
  Company Number: DE-JNJFOC-20100206215

PATIENT
  Age: 55 Year
  Sex: Female
  Weight: 95 kg

DRUGS (3)
  1. REMICADE [Suspect]
     Indication: COLITIS ULCERATIVE
     Route: 042
     Dates: start: 20090827, end: 20100211
  2. SALOFALK [Concomitant]
     Indication: COLITIS ULCERATIVE
     Route: 048
  3. SALOFALK [Concomitant]
     Route: 048

REACTIONS (1)
  - PEMPHIGOID [None]
